FAERS Safety Report 6730397-9 (Version None)
Quarter: 2010Q2

REPORT INFORMATION
  Report Type: 
  Country: None (occurrence: None)
  Receive Date: 20100518
  Receipt Date: 20100507
  Transmission Date: 20101027
  Serious: Yes (Other)
  Sender: FDA-Public Use
  Company Number: A0858694A

PATIENT
  Age: 31 Year
  Sex: Female

DRUGS (2)
  1. LAMICTAL XR [Suspect]
     Route: 048
     Dates: start: 20100401, end: 20100504
  2. KEPPRA XR [Suspect]
     Indication: DRUG USE FOR UNKNOWN INDICATION

REACTIONS (4)
  - CONVULSION [None]
  - DRUG EFFECT INCREASED [None]
  - OVERDOSE [None]
  - RASH [None]
